FAERS Safety Report 7342233-0 (Version None)
Quarter: 2011Q1

REPORT INFORMATION
  Report Type: 
  Country: None (occurrence: None)
  Receive Date: 20110310
  Receipt Date: 20110302
  Transmission Date: 20110831
  Serious: Yes (Other)
  Sender: FDA-Public Use
  Company Number: US-BIOGENIDEC-2011BI005721

PATIENT
  Age: 52 Year
  Sex: Female

DRUGS (4)
  1. TYSABRI [Suspect]
     Indication: MULTIPLE SCLEROSIS
     Route: 042
     Dates: start: 20070209
  2. ASPIRIN [Concomitant]
     Indication: INTRACARDIAC THROMBUS
  3. ATACAND HCT [Concomitant]
     Indication: BLOOD PRESSURE DECREASED
  4. COUMADIN [Concomitant]
     Indication: ATRIAL FIBRILLATION
     Dates: end: 20101129

REACTIONS (3)
  - TREMOR [None]
  - PARAESTHESIA [None]
  - BLOOD PRESSURE DECREASED [None]
